FAERS Safety Report 25676174 (Version 1)
Quarter: 2025Q3

REPORT INFORMATION
  Report Type: Spontaneous
  Country: US (occurrence: US)
  Receive Date: 20250813
  Receipt Date: 20250813
  Transmission Date: 20251021
  Serious: No
  Sender: ANI
  Company Number: US-ANIPHARMA-2024-US-051856

PATIENT
  Age: 65 Year
  Sex: Female
  Weight: 103.87 kg

DRUGS (10)
  1. ANASTROZOLE [Suspect]
     Active Substance: ANASTROZOLE
     Indication: Breast cancer
     Route: 048
     Dates: start: 202406, end: 202407
  2. Womens 50+ Vitamin [Concomitant]
  3. CLOPIDOGREL [Concomitant]
     Active Substance: CLOPIDOGREL BISULFATE
  4. LESCOL XL [Concomitant]
     Active Substance: FLUVASTATIN SODIUM
  5. UNSPECIFIED INGREDIENT [Concomitant]
     Active Substance: UNSPECIFIED INGREDIENT
  6. ALBUTEROL [Concomitant]
     Active Substance: ALBUTEROL
  7. INSULIN NOS [Concomitant]
     Active Substance: INSULIN NOS
  8. LITHIUM [Concomitant]
     Active Substance: LITHIUM
  9. RISPERIDONE [Concomitant]
     Active Substance: RISPERIDONE
  10. ALPRAZOLAM [Concomitant]
     Active Substance: ALPRAZOLAM

REACTIONS (2)
  - Confusional state [Not Recovered/Not Resolved]
  - Brain fog [Not Recovered/Not Resolved]

NARRATIVE: CASE EVENT DATE: 20240601
